FAERS Safety Report 10656116 (Version 2)
Quarter: 2015Q1

REPORT INFORMATION
  Report Type: Spontaneous
  Country: US (occurrence: US)
  Receive Date: 20141216
  Receipt Date: 20150320
  Transmission Date: 20150720
  Serious: Yes (Hospitalization)
  Sender: FDA-Public Use
  Company Number: US-BAYER-2014-183246

PATIENT
  Age: 32 Year
  Sex: Female
  Weight: 104.31 kg

DRUGS (4)
  1. MIRENA [Suspect]
     Active Substance: LEVONORGESTREL
     Indication: CONTRACEPTION
     Dosage: 20 MCG/24HR, CONT
     Route: 015
     Dates: start: 20100908, end: 20110304
  2. TINDAMAX [Concomitant]
     Active Substance: TINIDAZOLE
     Indication: VAGINAL INFECTION
     Dosage: UNK
     Dates: start: 2005, end: 2014
  3. MIRENA [Suspect]
     Active Substance: LEVONORGESTREL
     Indication: CONTRACEPTION
     Dosage: 20 MCG/24HR, CONT
     Route: 015
     Dates: start: 20110601, end: 20131212
  4. FLAGYL [Concomitant]
     Active Substance: METRONIDAZOLE\METRONIDAZOLE HYDROCHLORIDE
     Indication: VAGINAL INFECTION
     Dosage: UNK
     Dates: start: 2005, end: 2014

REACTIONS (9)
  - Embedded device [None]
  - Device issue [None]
  - Device issue [None]
  - Injury [None]
  - Pain [None]
  - Device dislocation [None]
  - Medical device discomfort [None]
  - Procedural pain [None]
  - General physical health deterioration [None]

NARRATIVE: CASE EVENT DATE: 201103
